FAERS Safety Report 12531284 (Version 1)
Quarter: 2016Q3

REPORT INFORMATION
  Report Type: Spontaneous
  Country: US (occurrence: US)
  Receive Date: 20160706
  Receipt Date: 20160706
  Transmission Date: 20161109
  Serious: No
  Sender: FDA-Public Use
  Company Number: US-PFIZER INC-2950670

PATIENT
  Age: 52 Year
  Sex: Male
  Weight: 105.6 kg

DRUGS (4)
  1. METFORMIN [Concomitant]
     Active Substance: METFORMIN HYDROCHLORIDE
     Indication: DIABETES MELLITUS
     Dosage: UNK
  2. MIDAZOLAM [Suspect]
     Active Substance: MIDAZOLAM\MIDAZOLAM HYDROCHLORIDE
     Indication: SEDATIVE THERAPY
     Dosage: 8 MG, DIVIDED DOSES IN 2MG IV PUSH X 4 ADMINISTRATIONS
     Route: 040
     Dates: start: 20150715, end: 20150715
  3. CIALIS [Concomitant]
     Active Substance: TADALAFIL
     Indication: ESSENTIAL HYPERTENSION
  4. FENTANYL. [Concomitant]
     Active Substance: FENTANYL
     Indication: ENDOSCOPY
     Dosage: 150 UG, DIVIDED DOSES
     Route: 042
     Dates: start: 20150715, end: 20150715

REACTIONS (1)
  - Drug effect incomplete [Recovered/Resolved]

NARRATIVE: CASE EVENT DATE: 20150715
